FAERS Safety Report 15298116 (Version 1)
Quarter: 2018Q3

REPORT INFORMATION
  Report Type: Spontaneous
  Country: AU (occurrence: AU)
  Receive Date: 20180820
  Receipt Date: 20180820
  Transmission Date: 20181010
  Serious: Yes (Other)
  Sender: FDA-Public Use
  Company Number: AU-BAUSCH-BL-2018-022274

PATIENT
  Age: 2 Year
  Sex: Male

DRUGS (5)
  1. HYDROCORTISONE. [Suspect]
     Active Substance: HYDROCORTISONE
     Indication: CHRONIC PAPILLOMATOUS DERMATITIS
     Route: 065
  2. LOPERAMIDE [Concomitant]
     Active Substance: LOPERAMIDE
     Indication: ANAL INCONTINENCE
     Route: 048
  3. ILEX [Concomitant]
     Indication: CHRONIC PAPILLOMATOUS DERMATITIS
     Dosage: SKIN BARRIER CREAM
     Route: 065
  4. MICONAZOLE, ZINC [Concomitant]
     Indication: CHRONIC PAPILLOMATOUS DERMATITIS
     Route: 065
  5. FLAMIGEL [Concomitant]
     Indication: CHRONIC PAPILLOMATOUS DERMATITIS
     Dosage: HYDROACTIVE COLLOID GEL
     Route: 065

REACTIONS (1)
  - Drug ineffective [Unknown]
